FAERS Safety Report 6165996-9 (Version None)
Quarter: 2009Q2

REPORT INFORMATION
  Report Type: 
  Country: None (occurrence: None)
  Receive Date: 20090422
  Receipt Date: 20090422
  Transmission Date: 20091009
  Serious: Yes (Other)
  Sender: FDA-Public Use
  Company Number: CHPA2009US09513

PATIENT
  Age: 60 Year
  Sex: Female
  Weight: 76.2 kg

DRUGS (2)
  1. EXCEDRIN ES BACK + BODY (NCH0 (ACETYLSALICYLIC ACID, ACETAMINOPHEN(PAR [Suspect]
     Indication: BACK PAIN
     Dosage: 1 DF, TID, ORAL
     Route: 048
     Dates: start: 20090409, end: 20090411
  2. LASIX [Concomitant]

REACTIONS (4)
  - BLOOD PRESSURE INCREASED [None]
  - CONTUSION [None]
  - HEADACHE [None]
  - POLLAKIURIA [None]
